FAERS Safety Report 6583445-3 (Version None)
Quarter: 2010Q1

REPORT INFORMATION
  Report Type: 
  Country: None (occurrence: None)
  Receive Date: 20100216
  Receipt Date: 20100208
  Transmission Date: 20100710
  Serious: Yes (Hospitalization)
  Sender: FDA-Public Use
  Company Number: PT-TEVA-223992ISR

PATIENT
  Age: 30 Year
  Sex: Female

DRUGS (7)
  1. SIMVASTATIN [Suspect]
  2. AMOXICILLIN AND CLAVULANATE POTASSIUM [Interacting]
     Indication: DENTAL DISCOMFORT
     Dosage: 875MG AND 125MG TWICE DAILY
  3. PREDNISONE [Concomitant]
     Indication: SYSTEMIC LUPUS ERYTHEMATOSUS
  4. AZATHIOPRINE [Concomitant]
     Indication: SYSTEMIC LUPUS ERYTHEMATOSUS
  5. CAPTOPRIL [Concomitant]
  6. FUROSEMIDE [Concomitant]
  7. FOLIC ACID [Concomitant]

REACTIONS (7)
  - DRUG INTERACTION [None]
  - HEPATOTOXICITY [None]
  - HYPERSENSITIVITY [None]
  - RENAL FAILURE ACUTE [None]
  - RHABDOMYOLYSIS [None]
  - SEPSIS [None]
  - SYSTEMIC LUPUS ERYTHEMATOSUS [None]
